FAERS Safety Report 10559851 (Version 1)
Quarter: 2014Q4

REPORT INFORMATION
  Report Type: Spontaneous
  Country: US (occurrence: None)
  Receive Date: 20141031
  Receipt Date: 20141031
  Transmission Date: 20150529
  Serious: Yes (Hospitalization)
  Sender: FDA-Public Use
  Company Number: None

PATIENT
  Age: 40 Year
  Sex: Female
  Weight: 68.95 kg

DRUGS (1)
  1. MACRODANTIN [Suspect]
     Active Substance: NITROFURANTOIN
     Indication: DRUG THERAPY
     Dosage: 1 PILL, TWICE DAILY, TAKEN BY MOUTH
     Route: 048
     Dates: start: 20140403, end: 20140405

REACTIONS (3)
  - Leukopenia [None]
  - Pyrexia [None]
  - Transaminases increased [None]

NARRATIVE: CASE EVENT DATE: 20140405
